FAERS Safety Report 9033423 (Version 1)
Quarter: 2013Q1

REPORT INFORMATION
  Report Type: Spontaneous
  Country: CA (occurrence: CA)
  Receive Date: 20130128
  Receipt Date: 20130128
  Transmission Date: 20140127
  Serious: Yes (Hospitalization, Other)
  Sender: FDA-Public Use
  Company Number: CA-AMGEN-CANSP2011042030

PATIENT
  Age: 65 Year
  Sex: Female

DRUGS (12)
  1. ATACAND [Concomitant]
     Dosage: UNK
  2. ASPIRIN [Concomitant]
     Dosage: UNK
  3. VITAMIN D /00107901/ [Concomitant]
     Dosage: UNK UNK, QWK
  4. VENLAFAXINE [Concomitant]
     Dosage: UNK
  5. CALCIUM [Concomitant]
     Dosage: UNK
  6. PANTOPRAZOLE [Concomitant]
     Dosage: UNK
  7. CLONAZEPAM [Concomitant]
     Dosage: UNK
  8. HYDROMORPHONE [Concomitant]
     Dosage: UNK
  9. ACETAMINOPHEN [Concomitant]
     Dosage: 650 MG, Q8H
  10. PREDNISONE [Concomitant]
     Dosage: UNK
  11. METHOTREXATE [Concomitant]
     Dosage: UNK
  12. ENBREL [Suspect]
     Indication: RHEUMATOID ARTHRITIS
     Dosage: 50 MG, QWK
     Dates: start: 20100225, end: 201203

REACTIONS (5)
  - Pancreatitis [Not Recovered/Not Resolved]
  - Alveolitis [Recovered/Resolved]
  - Pancreatic carcinoma [Not Recovered/Not Resolved]
  - Hand deformity [Not Recovered/Not Resolved]
  - Burning sensation [Not Recovered/Not Resolved]
